FAERS Safety Report 6795525-8 (Version None)
Quarter: 2010Q2

REPORT INFORMATION
  Report Type: 
  Country: None (occurrence: None)
  Receive Date: 20100625
  Receipt Date: 20100617
  Transmission Date: 20101027
  Serious: Yes (Death, Other)
  Sender: FDA-Public Use
  Company Number: US-AMGEN-QUU415196

PATIENT
  Sex: Male

DRUGS (1)
  1. NPLATE [Suspect]
     Indication: IDIOPATHIC THROMBOCYTOPENIC PURPURA
     Dates: start: 20091201, end: 20100201

REACTIONS (4)
  - BIOPSY BONE MARROW ABNORMAL [None]
  - DISEASE PROGRESSION [None]
  - HAEMATOLOGICAL MALIGNANCY [None]
  - MYELODYSPLASTIC SYNDROME [None]
